FAERS Safety Report 8919436 (Version 2)
Quarter: 2013Q1

REPORT INFORMATION
  Report Type: Spontaneous
  Country: JP (occurrence: None)
  Receive Date: 20121114
  Receipt Date: 20121205
  Transmission Date: 20140127
  Serious: Yes (Other)
  Sender: FDA-Public Use
  Company Number: 2012S1001490

PATIENT
  Age: 60 Year
  Sex: Male

DRUGS (4)
  1. LIVALO (PITAVASTATIN) TABLETS 2 MG [Suspect]
     Indication: DYSLIPIDAEMIA
     Route: 048
  2. LANSAP [Concomitant]
  3. GASTER D [Concomitant]
  4. HARNAL [Concomitant]

REACTIONS (2)
  - Urinary retention [None]
  - Helicobacter infection [None]
